FAERS Safety Report 6603871-3 (Version None)
Quarter: 2010Q1

REPORT INFORMATION
  Report Type: 
  Country: None (occurrence: None)
  Receive Date: 20100226
  Receipt Date: 20090302
  Transmission Date: 20100710
  Serious: No
  Sender: FDA-Public Use
  Company Number: A0771115A

PATIENT
  Age: 43 Year
  Sex: Female

DRUGS (7)
  1. LAMICTAL CD [Suspect]
     Indication: BIPOLAR DISORDER
     Dosage: 100MG VARIABLE DOSE
     Route: 048
     Dates: start: 20020101, end: 20090301
  2. LAMOTRIGINE [Suspect]
     Route: 048
  3. CORTISONE [Concomitant]
  4. DIOVAN [Concomitant]
  5. MULTI-VITAMINS [Concomitant]
  6. PRIMROSE OIL [Concomitant]
  7. DIETARY SUPPLEMENT [Concomitant]

REACTIONS (4)
  - LOCAL SWELLING [None]
  - PRURITUS [None]
  - RASH [None]
  - SWOLLEN TONGUE [None]
